FAERS Safety Report 5843477-7 (Version None)
Quarter: 2008Q3

REPORT INFORMATION
  Report Type: 
  Country: None (occurrence: None)
  Receive Date: 20080811
  Receipt Date: 20080722
  Transmission Date: 20090109
  Serious: Yes (Other)
  Sender: FDA-Public Use
  Company Number: GB-2008-0342

PATIENT

DRUGS (1)
  1. NAVELBINE [Suspect]
     Dates: start: 20080514, end: 20080514

REACTIONS (3)
  - ABORTION SPONTANEOUS [None]
  - ACCIDENTAL EXPOSURE [None]
  - DRUG EXPOSURE DURING PREGNANCY [None]
